FAERS Safety Report 20301587 (Version 1)
Quarter: 2022Q1

REPORT INFORMATION
  Report Type: Spontaneous
  Country: CN (occurrence: CN)
  Receive Date: 20220105
  Receipt Date: 20220105
  Transmission Date: 20220423
  Serious: Yes (Other)
  Sender: FDA-Public Use
  Company Number: CN-PFIZER INC-202101883100

PATIENT
  Age: 76 Year
  Sex: Male
  Weight: 50 kg

DRUGS (2)
  1. METHYLPREDNISOLONE SODIUM SUCCINATE [Suspect]
     Active Substance: METHYLPREDNISOLONE SODIUM SUCCINATE
     Indication: Arthritis
     Dosage: 40 MG, 1X/DAY
     Route: 041
     Dates: start: 20210831, end: 20210831
  2. SODIUM CHLORIDE [Concomitant]
     Active Substance: SODIUM CHLORIDE
     Indication: Vehicle solution use
     Dosage: 100 ML, 1X/DAY
     Route: 041
     Dates: start: 20210831, end: 20210831

REACTIONS (1)
  - Adrenal insufficiency [Unknown]

NARRATIVE: CASE EVENT DATE: 20210901
